FAERS Safety Report 9381068 (Version 3)
Quarter: 2014Q1

REPORT INFORMATION
  Report Type: Spontaneous
  Country: US (occurrence: US)
  Receive Date: 20130703
  Receipt Date: 20140129
  Transmission Date: 20141002
  Serious: Yes (Other)
  Sender: FDA-Public Use
  Company Number: US-BIOGENIDEC-2013BI054359

PATIENT
  Age: 35 Year
  Sex: Female

DRUGS (10)
  1. AVONEX [Suspect]
     Indication: MULTIPLE SCLEROSIS
     Route: 030
     Dates: start: 20130510
  2. AVONEX [Suspect]
     Indication: MULTIPLE SCLEROSIS
     Route: 030
     Dates: start: 20130518
  3. SOMA [Concomitant]
     Indication: MUSCLE SPASMS
  4. KLONOPIN [Concomitant]
     Indication: ANXIETY
     Route: 048
  5. BACLOFEN [Concomitant]
     Route: 048
  6. GABAPENTIN [Concomitant]
     Indication: SLEEP DISORDER
  7. AMANTADINE [Concomitant]
  8. NORTRIPTYLINE [Concomitant]
  9. OXYCODONE [Concomitant]
  10. PROPANOLOL [Concomitant]

REACTIONS (14)
  - Progressive multiple sclerosis [Not Recovered/Not Resolved]
  - Drug ineffective [Not Recovered/Not Resolved]
  - Lung infection [Not Recovered/Not Resolved]
  - Pulmonary congestion [Not Recovered/Not Resolved]
  - Nasal congestion [Not Recovered/Not Resolved]
  - Weight decreased [Not Recovered/Not Resolved]
  - Influenza like illness [Not Recovered/Not Resolved]
  - Pain [Recovered/Resolved]
  - Pyrexia [Recovered/Resolved]
  - Convulsion [Recovered/Resolved]
  - Fall [Recovered/Resolved]
  - Tremor [Not Recovered/Not Resolved]
  - Optic neuritis [Recovered/Resolved]
  - Memory impairment [Not Recovered/Not Resolved]
